FAERS Safety Report 7524604-2 (Version None)
Quarter: 2011Q2

REPORT INFORMATION
  Report Type: 
  Country: None (occurrence: None)
  Receive Date: 20110606
  Receipt Date: 20110527
  Transmission Date: 20111010
  Serious: No
  Sender: FDA-Public Use
  Company Number: US-JNJFOC-20110512458

PATIENT
  Sex: Female
  Weight: 51.71 kg

DRUGS (9)
  1. DURAGESIC-100 [Suspect]
     Route: 062
     Dates: start: 20070101
  2. FLUTICASONE PROPIONATE [Concomitant]
     Indication: NASAL DRYNESS
     Route: 045
     Dates: start: 20050101
  3. DURAGESIC-100 [Suspect]
     Indication: CHEST PAIN
     Route: 062
     Dates: start: 20070101
  4. PERCOCET [Concomitant]
     Indication: PAIN
     Dosage: 10-650 MG, 325 MG FOUR TIMES A DAY
     Route: 048
     Dates: start: 19890101
  5. ADVAIR DISKUS 100/50 [Concomitant]
     Indication: ASTHMA
     Route: 055
     Dates: start: 20080101
  6. DURAGESIC-100 [Suspect]
     Route: 062
     Dates: start: 20070101
  7. DURAGESIC-100 [Suspect]
     Indication: BACK PAIN
     Route: 062
     Dates: start: 20070101
  8. OXYCONTIN [Concomitant]
     Indication: PAIN
     Route: 048
     Dates: start: 19890101
  9. XOPENEX HFA [Concomitant]
     Indication: ASTHMA
     Dosage: 2 PUFFS EVERY 4-6  HOURS
     Route: 055

REACTIONS (3)
  - PAIN [None]
  - PRODUCT PHYSICAL ISSUE [None]
  - DRUG DOSE OMISSION [None]
